FAERS Safety Report 11807650 (Version 5)
Quarter: 2016Q3

REPORT INFORMATION
  Report Type: Report from Study
  Country: CN (occurrence: CN)
  Receive Date: 20151207
  Receipt Date: 20160817
  Transmission Date: 20161109
  Serious: Yes (Hospitalization)
  Sender: FDA-Public Use
  Company Number: CN-ASTELLAS-2015US045457

PATIENT
  Age: 64 Year
  Sex: Male

DRUGS (1)
  1. ERLOTINIB [Suspect]
     Active Substance: ERLOTINIB
     Indication: NON-SMALL CELL LUNG CANCER
     Route: 048
     Dates: start: 20140328

REACTIONS (10)
  - Dizziness [Unknown]
  - Discomfort [Unknown]
  - Vomiting [Unknown]
  - Cerebrovascular insufficiency [Unknown]
  - Asthenia [Unknown]
  - Dyspepsia [Unknown]
  - Pyrexia [Unknown]
  - Decreased appetite [Unknown]
  - General physical health deterioration [Unknown]
  - Gait disturbance [Unknown]

NARRATIVE: CASE EVENT DATE: 20151105
